FAERS Safety Report 21000077 (Version 1)
Quarter: 2022Q2

REPORT INFORMATION
  Report Type: Spontaneous
  Country: TR (occurrence: TR)
  Receive Date: 20220623
  Receipt Date: 20220623
  Transmission Date: 20220721
  Serious: Yes (Other)
  Sender: FDA-Public Use
  Company Number: TR-TEVA-2022-TR-2047612

PATIENT
  Age: 9 Year
  Sex: Female

DRUGS (4)
  1. METOPROLOL [Suspect]
     Active Substance: METOPROLOL
     Indication: Cardiomyopathy
     Route: 065
  2. INTERFERON GAMMA [Suspect]
     Active Substance: INTERFERON GAMMA
     Indication: Friedreich^s ataxia
     Dosage: 3 DAYS/WEEK
     Route: 065
  3. INTERFERON GAMMA [Suspect]
     Active Substance: INTERFERON GAMMA
     Indication: Cardiomyopathy
     Dosage: 3 DAYS/WEEK
     Route: 065
  4. INTERFERON GAMMA [Suspect]
     Active Substance: INTERFERON GAMMA
     Indication: Nervous system disorder
     Dosage: 3 DAYS/WEEK
     Route: 065

REACTIONS (3)
  - Drug ineffective [Unknown]
  - Influenza like illness [Unknown]
  - Off label use [Unknown]
